FAERS Safety Report 21515534 (Version 1)
Quarter: 2022Q4

REPORT INFORMATION
  Report Type: Spontaneous
  Country: US (occurrence: US)
  Receive Date: 20221027
  Receipt Date: 20221027
  Transmission Date: 20230112
  Serious: Yes (Hospitalization, Other)
  Sender: FDA-Public Use
  Company Number: US-LUNDBECK-DKLU3053620

PATIENT
  Sex: Male

DRUGS (2)
  1. CITALOPRAM HYDROBROMIDE [Suspect]
     Active Substance: CITALOPRAM HYDROBROMIDE
     Indication: Product used for unknown indication
     Dosage: OVERDOSE: 60 TABLETS OF CITALOPRAM (40 MG EACH)
  2. HYDROXYZINE [Suspect]
     Active Substance: HYDROXYZINE HYDROCHLORIDE
     Indication: Product used for unknown indication
     Dosage: 15 PILLS OF HYDROXYZINE (25MG EACH)

REACTIONS (9)
  - Fall [Unknown]
  - Acute respiratory distress syndrome [Unknown]
  - Mental status changes [Unknown]
  - Overdose [Unknown]
  - Seizure [Unknown]
  - Confusional state [Unknown]
  - Somnolence [Unknown]
  - Hypotension [Unknown]
  - Electrocardiogram QT prolonged [Unknown]
